FAERS Safety Report 5748112-4 (Version None)
Quarter: 2008Q2

REPORT INFORMATION
  Report Type: 
  Country: None (occurrence: None)
  Receive Date: 20080523
  Receipt Date: 20080521
  Transmission Date: 20081010
  Serious: Yes (Death, Hospitalization)
  Sender: FDA-Public Use
  Company Number: CA-ABBOTT-08P-028-0449013-00

PATIENT
  Sex: Female
  Weight: 52 kg

DRUGS (8)
  1. HUMIRA [Suspect]
     Indication: RHEUMATOID ARTHRITIS
     Route: 058
     Dates: start: 20080129, end: 20080408
  2. METHOTREXATE [Suspect]
     Indication: RHEUMATOID ARTHRITIS
     Route: 048
     Dates: start: 20080129, end: 20080415
  3. HYDROXYCHLOROQUINE SULFATE [Concomitant]
     Indication: ARTHRALGIA
     Dates: start: 20071129, end: 20080109
  4. CALCIUM WITH VITAMIN D [Concomitant]
     Indication: MINERAL SUPPLEMENTATION
     Dates: start: 20040101
  5. CELECOXIB [Concomitant]
     Indication: ARTHRALGIA
     Route: 048
     Dates: start: 20071007, end: 20071216
  6. CELECOXIB [Concomitant]
     Indication: RHEUMATOID ARTHRITIS
     Route: 048
     Dates: start: 20071217
  7. CYANOCOBALAMIN [Concomitant]
     Indication: ANAEMIA
     Dates: start: 20070601
  8. FOLIC ACID [Concomitant]
     Indication: VITAMIN SUPPLEMENTATION
     Dates: start: 20080131

REACTIONS (2)
  - ACUTE RESPIRATORY DISTRESS SYNDROME [None]
  - PNEUMONIA [None]
